FAERS Safety Report 5423067-0 (Version None)
Quarter: 2007Q3

REPORT INFORMATION
  Report Type: 
  Country: None (occurrence: None)
  Receive Date: 20070821
  Receipt Date: 20070806
  Transmission Date: 20080115
  Serious: No
  Sender: FDA-Public Use
  Company Number: ADE2007-0019

PATIENT
  Sex: Female

DRUGS (1)
  1. LISINOPRIL [Suspect]
     Indication: HYPERTENSION
     Dosage: 20 MG - QD - ORAL
     Route: 048
     Dates: start: 20070701, end: 20070701

REACTIONS (2)
  - HYPERTENSION [None]
  - PHARMACEUTICAL PRODUCT COMPLAINT [None]
